FAERS Safety Report 8116761-4 (Version None)
Quarter: 2012Q1

REPORT INFORMATION
  Report Type: 
  Country: None (occurrence: None)
  Receive Date: 20120206
  Receipt Date: 20120127
  Transmission Date: 20120608
  Serious: Yes (Hospitalization)
  Sender: FDA-Public Use
  Company Number: US-BAYER-2011-040589

PATIENT
  Age: 29 Year
  Sex: Female
  Weight: 58.503 kg

DRUGS (3)
  1. NEXIUM [Concomitant]
     Route: 048
  2. YASMIN [Suspect]
     Indication: CONTRACEPTION
     Dosage: UNK
     Dates: start: 19930101, end: 20101101
  3. YAZ [Suspect]
     Indication: CONTRACEPTION
     Dosage: UNK
     Dates: start: 19930101, end: 20101101

REACTIONS (8)
  - ANXIETY [None]
  - CHOLECYSTITIS [None]
  - PSYCHOLOGICAL TRAUMA [None]
  - ABDOMINAL PAIN UPPER [None]
  - PAIN [None]
  - EMOTIONAL DISTRESS [None]
  - INJURY [None]
  - FEAR [None]
